FAERS Safety Report 15838440 (Version 1)
Quarter: 2019Q1

REPORT INFORMATION
  Report Type: Other
  Country: CA (occurrence: CA)
  Receive Date: 20190117
  Receipt Date: 20190117
  Transmission Date: 20190417
  Serious: Yes (Other)
  Sender: FDA-Public Use
  Company Number: CA-PFIZER INC-2019016998

PATIENT
  Sex: Male
  Weight: 2 kg

DRUGS (5)
  1. CINACALCET. [Suspect]
     Active Substance: CINACALCET
     Dosage: UNK
     Route: 064
  2. SENSIPAR [Suspect]
     Active Substance: CINACALCET HYDROCHLORIDE
     Dosage: UNK
     Route: 064
  3. CALCITONIN (CALCITONIN, SALMON) [Suspect]
     Active Substance: CALCITONIN SALMON
     Dosage: UNK
     Route: 064
  4. FUROSEMIDE. [Suspect]
     Active Substance: FUROSEMIDE
     Dosage: UNK
     Route: 064
  5. SALINE [SODIUM CHLORIDE] [Suspect]
     Active Substance: SODIUM CHLORIDE
     Dosage: UNK
     Route: 064

REACTIONS (2)
  - Premature baby [Unknown]
  - Foetal exposure during pregnancy [Unknown]
